FAERS Safety Report 21377061 (Version 1)
Quarter: 2022Q3

REPORT INFORMATION
  Report Type: Report from Study
  Country: CA (occurrence: CA)
  Receive Date: 20220926
  Receipt Date: 20220926
  Transmission Date: 20221026
  Serious: Yes (Other)
  Sender: FDA-Public Use
  Company Number: CA-TAKEDA-2022TUS066693

PATIENT
  Age: 42 Year
  Sex: Male

DRUGS (4)
  1. PANTOPRAZOLE MAGNESIUM [Suspect]
     Active Substance: PANTOPRAZOLE MAGNESIUM
     Indication: Gastrooesophageal reflux disease
     Dosage: UNK
     Route: 065
  2. ENTYVIO [Suspect]
     Active Substance: VEDOLIZUMAB
     Indication: Crohn^s disease
     Dosage: 300 MILLIGRAM
     Route: 042
     Dates: start: 20180925
  3. ENTYVIO [Suspect]
     Active Substance: VEDOLIZUMAB
     Dosage: 300 MG, MONTHLY (Q4WEEKS)
     Route: 042
     Dates: start: 20201202
  4. IMURAN [Concomitant]
     Active Substance: AZATHIOPRINE
     Dosage: 80 MG

REACTIONS (4)
  - Burning sensation [Unknown]
  - Pain [Unknown]
  - Blister [Unknown]
  - Frustration tolerance decreased [Unknown]
